FAERS Safety Report 25675614 (Version 2)
Quarter: 2025Q3

REPORT INFORMATION
  Report Type: Spontaneous
  Country: JP (occurrence: JP)
  Receive Date: 20250813
  Receipt Date: 20250815
  Transmission Date: 20251020
  Serious: Yes (Other)
  Sender: UCB
  Company Number: JP-UCBJ-CD202510471UCBPHAPROD

PATIENT

DRUGS (2)
  1. LEVETIRACETAM [Suspect]
     Active Substance: LEVETIRACETAM
     Indication: Epilepsy
     Dosage: 1000 MILLIGRAM, 2X/DAY (BID)
     Route: 048
  2. LEVETIRACETAM [Suspect]
     Active Substance: LEVETIRACETAM
     Dosage: 2 GRAM, 2X/DAY (BID)
     Route: 048

REACTIONS (2)
  - Volvulus [Unknown]
  - Dysphagia [Unknown]
